FAERS Safety Report 8720910 (Version 4)
Quarter: 2012Q4

REPORT INFORMATION
  Report Type: Report from Study
  Country: DE (occurrence: DE)
  Receive Date: 20120813
  Receipt Date: 20121008
  Transmission Date: 20130627
  Serious: Yes (Death, Hospitalization)
  Sender: FDA-Public Use
  Company Number: DE-GLAXOSMITHKLINE-B0822306A

PATIENT
  Age: 42 Year
  Sex: Male
  Weight: 83 kg

DRUGS (2)
  1. PAZOPANIB [Suspect]
     Indication: SARCOMA METASTATIC
     Dosage: 400MG per day
     Route: 048
     Dates: start: 20120716, end: 20120806
  2. MORPHINE [Concomitant]
     Indication: PAIN
     Route: 048
     Dates: start: 20120710, end: 20120806

REACTIONS (1)
  - Neoplasm progression [Fatal]
